FAERS Safety Report 4404161-X (Version None)
Quarter: 2004Q3

REPORT INFORMATION
  Report Type: 
  Country: None (occurrence: None)
  Receive Date: 20040719
  Receipt Date: 20040708
  Transmission Date: 20050211
  Serious: Yes (Hospitalization)
  Sender: FDA-Public Use
  Company Number: 2004SE03977

PATIENT
  Age: 72 Year
  Sex: Female

DRUGS (14)
  1. PLENDIL [Suspect]
     Indication: CARDIAC DISORDER
     Dates: end: 20040501
  2. CISORDINOL [Suspect]
     Indication: PSYCHOTIC DISORDER
     Dosage: 2 MG TID PO
     Route: 048
     Dates: end: 20040426
  3. CISORDINOL [Suspect]
     Indication: PSYCHOTIC DISORDER
     Dosage: 4 MG TID PO
     Route: 048
     Dates: start: 20040427, end: 20040501
  4. CISORDINOL [Suspect]
     Indication: PSYCHOTIC DISORDER
     Dosage: 6 MG DAILY PO
     Route: 048
  5. CETIRIZIN [Concomitant]
  6. ACETAMINOPHEN [Concomitant]
  7. FUROSEMIDE [Concomitant]
  8. OXASCAND [Concomitant]
  9. TROMBYL [Concomitant]
  10. LEVAXIN [Concomitant]
  11. IMDUR [Concomitant]
  12. LAKTIPEX [Concomitant]
  13. IDEOS [Concomitant]
  14. ZOPIKLON [Concomitant]

REACTIONS (8)
  - ATRIAL FIBRILLATION [None]
  - BLOOD PRESSURE SYSTOLIC DECREASED [None]
  - BRADYCARDIA [None]
  - COLD SWEAT [None]
  - FATIGUE [None]
  - PALLOR [None]
  - SOMNOLENCE [None]
  - SYNCOPE [None]
